FAERS Safety Report 6853031-6 (Version None)
Quarter: 2010Q3

REPORT INFORMATION
  Report Type: 
  Country: None (occurrence: None)
  Receive Date: 20100717
  Receipt Date: 20071210
  Transmission Date: 20110219
  Serious: No
  Sender: FDA-Public Use
  Company Number: US-PFIZER INC-2007101244

PATIENT
  Sex: Female
  Weight: 89.1 kg

DRUGS (10)
  1. CHANTIX [Suspect]
     Indication: SMOKING CESSATION THERAPY
     Dates: start: 20070901, end: 20071101
  2. BYETTA [Concomitant]
  3. METFORMIN HCL [Concomitant]
  4. LEVOTHYROXINE SODIUM [Concomitant]
  5. DRUG, UNSPECIFIED [Concomitant]
  6. PRILOSEC [Concomitant]
  7. LOVASTATIN [Concomitant]
  8. TEMAZEPAM [Concomitant]
  9. VICODIN [Concomitant]
  10. ZANAFLEX [Concomitant]

REACTIONS (5)
  - ABNORMAL DREAMS [None]
  - ALOPECIA [None]
  - DRUG INEFFECTIVE [None]
  - FEELING ABNORMAL [None]
  - WEIGHT INCREASED [None]
